FAERS Safety Report 25757443 (Version 2)
Quarter: 2025Q4

REPORT INFORMATION
  Report Type: Spontaneous
  Country: US (occurrence: US)
  Receive Date: 20250903
  Receipt Date: 20251104
  Transmission Date: 20260118
  Serious: No
  Sender: MERCK SHARP & DOHME LLC
  Company Number: US-009507513-2325260

PATIENT
  Sex: Female
  Weight: 65.317 kg

DRUGS (17)
  1. WINREVAIR [Suspect]
     Active Substance: SOTATERCEPT-CSRK
     Indication: Product used for unknown indication
     Route: 065
  2. WINREVAIR [Suspect]
     Active Substance: SOTATERCEPT-CSRK
  3. WINREVAIR [Suspect]
     Active Substance: SOTATERCEPT-CSRK
  4. WINREVAIR [Suspect]
     Active Substance: SOTATERCEPT-CSRK
  5. TYVASO [Suspect]
     Active Substance: TREPROSTINIL
     Indication: Pulmonary arterial hypertension
     Dosage: 96 UG (16 BREATHS), FOUR TIMES A DAY (QID) VIA INHALATION (IH) ROUTE; CONCENTRATION 0.6 MG/ML
     Route: 055
     Dates: start: 20210104
  6. MILRINONE [Concomitant]
     Active Substance: MILRINONE
  7. PRAVASTATIN SODIUM [Concomitant]
     Active Substance: PRAVASTATIN SODIUM
  8. TORSEMIDE [Concomitant]
     Active Substance: TORSEMIDE
  9. TOZINAMERAN [Concomitant]
     Active Substance: TOZINAMERAN
  10. ALLOPURINOL [Concomitant]
     Active Substance: ALLOPURINOL
  11. SILDENAFIL CITRATE [Concomitant]
     Active Substance: SILDENAFIL CITRATE
  12. GLIPIZIDE [Concomitant]
     Active Substance: GLIPIZIDE
  13. VITAMINS [Concomitant]
     Active Substance: VITAMINS
  14. OXYGEN [Concomitant]
     Active Substance: OXYGEN
  15. METFORMIN HYDROCHLORIDE [Concomitant]
     Active Substance: METFORMIN HYDROCHLORIDE
  16. OMEPRAZOLE [Concomitant]
     Active Substance: OMEPRAZOLE
  17. NALTREXONE HYDROCHLORIDE [Concomitant]
     Active Substance: NALTREXONE HYDROCHLORIDE

REACTIONS (3)
  - Infusion site bruising [Unknown]
  - Injection site pain [Unknown]
  - Injection site mass [Unknown]
